FAERS Safety Report 5577558-2 (Version None)
Quarter: 2007Q4

REPORT INFORMATION
  Report Type: 
  Country: None (occurrence: None)
  Receive Date: 20071130
  Receipt Date: 20070923
  Transmission Date: 20080405
  Serious: No
  Sender: FDA-Public Use
  Company Number: US200709005656

PATIENT
  Age: 66 Year
  Sex: Female
  Weight: 110.7 kg

DRUGS (10)
  1. BYETTA [Suspect]
     Indication: TYPE 2 DIABETES MELLITUS
     Dosage: 5 UG, 2/D, SUBCUTANEOUS; 10 UG, 2/D, SUBCUTANEOUS
     Route: 058
     Dates: start: 20050101, end: 20050101
  2. BYETTA [Suspect]
     Indication: TYPE 2 DIABETES MELLITUS
     Dosage: 5 UG, 2/D, SUBCUTANEOUS; 10 UG, 2/D, SUBCUTANEOUS
     Route: 058
     Dates: end: 20070101
  3. EXENATIDE 5MCG PEN, DISPOSABLE DEVICE (EXENATIDE PEN (5MCG)) PEN,DISPO [Concomitant]
  4. EXENATIDE 10MCG PEN, DISPOSABLE DEVICE (EXENATIDE PEN (10MCG)) PEN,DIS [Concomitant]
  5. GLUCOPHAGE [Concomitant]
  6. DIGOXIN [Concomitant]
  7. COUMADIN [Concomitant]
  8. AMILOHYD (AMILORIDE, HYDROCHLOROTHIAZIDE) [Concomitant]
  9. LISINOPRIL [Concomitant]
  10. LIPITOR [Concomitant]

REACTIONS (3)
  - HEART RATE INCREASED [None]
  - NAUSEA [None]
  - PRESYNCOPE [None]
